FAERS Safety Report 10920273 (Version 2)
Quarter: 2015Q2

REPORT INFORMATION
  Report Type: Spontaneous
  Country: CH (occurrence: CH)
  Receive Date: 20150317
  Receipt Date: 20150513
  Transmission Date: 20150821
  Serious: Yes (Death, Hospitalization, Other)
  Sender: FDA-Public Use
  Company Number: CH-BIOGENIDEC-2015BI030449

PATIENT
  Age: 51 Year
  Sex: Female
  Weight: 60 kg

DRUGS (8)
  1. OMEPRAZOL [Concomitant]
     Active Substance: OMEPRAZOLE
     Indication: GASTROOESOPHAGEAL REFLUX DISEASE
  2. TYSABRI [Suspect]
     Active Substance: NATALIZUMAB
     Indication: RELAPSING-REMITTING MULTIPLE SCLEROSIS
     Route: 042
     Dates: start: 200807, end: 201008
  3. RITALIN (METHYLPHENIDATE) - SUSPECT DRUG [Concomitant]
     Indication: FATIGUE
     Route: 048
  4. KLIOGEST [Concomitant]
     Active Substance: ESTROGENS
     Indication: MENOPAUSE
     Dates: end: 20130702
  5. 4-AMINOPYRIDINE (FAMPRIDINE) - SUSPECT DRUG [Concomitant]
     Indication: GAIT DISTURBANCE
     Route: 048
  6. CALCIMAGON [Concomitant]
     Active Substance: CALCIUM
     Indication: OSTEOPOROSIS
  7. OLFEN RETARD [Concomitant]
     Indication: PAIN
  8. TYSABRI [Suspect]
     Active Substance: NATALIZUMAB
     Indication: RELAPSING-REMITTING MULTIPLE SCLEROSIS
     Route: 042
     Dates: start: 201011, end: 20141209

REACTIONS (4)
  - Post procedural stroke [Not Recovered/Not Resolved]
  - Intracranial aneurysm [Recovered/Resolved]
  - Completed suicide [Fatal]
  - Partial seizures with secondary generalisation [Not Recovered/Not Resolved]

NARRATIVE: CASE EVENT DATE: 20110620
